FAERS Safety Report 6139575-3 (Version None)
Quarter: 2009Q1

REPORT INFORMATION
  Report Type: 
  Country: None (occurrence: None)
  Receive Date: 20090330
  Receipt Date: 20090330
  Transmission Date: 20090719
  Serious: Yes (Hospitalization)
  Sender: FDA-Public Use
  Company Number: None

PATIENT
  Age: 83 Year
  Sex: Male

DRUGS (7)
  1. GMCSF [Suspect]
     Indication: PROSTATE CANCER
     Dosage: 500 MCG QD X 14 DAYS SQ
     Route: 058
     Dates: start: 20090325
  2. SYNTHROID [Concomitant]
  3. OMEPRAZOLE [Concomitant]
  4. LUPRON [Concomitant]
  5. ZOMETA [Concomitant]
  6. LOPRESSOR [Concomitant]
  7. SENNEKOT [Concomitant]

REACTIONS (2)
  - DIZZINESS [None]
  - FATIGUE [None]
